FAERS Safety Report 8533280-1 (Version None)
Quarter: 2012Q3

REPORT INFORMATION
  Report Type: 
  Country: None (occurrence: None)
  Receive Date: 20120724
  Receipt Date: 20120719
  Transmission Date: 20120928
  Serious: Yes (Other)
  Sender: FDA-Public Use
  Company Number: DE-SANOFI-AVENTIS-2012SA043656

PATIENT
  Age: 90 Year
  Sex: Male

DRUGS (6)
  1. ARAVA [Suspect]
     Indication: POLYARTHRITIS
     Route: 048
  2. METOPROLOL SUCCINATE [Concomitant]
     Indication: HYPERTENSION
     Route: 065
  3. TAMSULOSIN HCL [Concomitant]
     Route: 065
  4. CLOPIDOGREL [Concomitant]
     Route: 065
  5. METHOTREXATE [Concomitant]
     Indication: POLYARTHRITIS
     Route: 065
  6. FINASTERIDE [Concomitant]
     Route: 065

REACTIONS (3)
  - LUNG DISORDER [None]
  - COUGH [None]
  - DYSPHONIA [None]
